FAERS Safety Report 24283780 (Version 2)
Quarter: 2024Q4

REPORT INFORMATION
  Report Type: Report from Study
  Country: US (occurrence: US)
  Receive Date: 20240905
  Receipt Date: 20241106
  Transmission Date: 20250115
  Serious: Yes (Other)
  Sender: ABBVIE
  Company Number: US-ABBVIE-5797770

PATIENT
  Age: 70 Year
  Sex: Female

DRUGS (1)
  1. HUMIRA [Suspect]
     Active Substance: ADALIMUMAB
     Indication: Psoriatic arthropathy
     Route: 058
     Dates: start: 20180816

REACTIONS (10)
  - Polyp [Unknown]
  - Bursitis [Unknown]
  - Hypertension [Unknown]
  - Arthralgia [Not Recovered/Not Resolved]
  - Arthritis [Not Recovered/Not Resolved]
  - Stress [Unknown]
  - Oropharyngeal candidiasis [Recovering/Resolving]
  - Cataract [Unknown]
  - Night blindness [Not Recovered/Not Resolved]
  - Precancerous condition [Unknown]

NARRATIVE: CASE EVENT DATE: 20240501
